FAERS Safety Report 4762524-7 (Version None)
Quarter: 2005Q3

REPORT INFORMATION
  Report Type: 
  Country: None (occurrence: None)
  Receive Date: 20050802
  Receipt Date: 20050520
  Transmission Date: 20060218
  Serious: Yes (Other)
  Sender: FDA-Public Use
  Company Number: 2005S1001181

PATIENT
  Age: 55 Year
  Sex: Female
  Weight: 83.4619 kg

DRUGS (3)
  1. FENTANYL [Suspect]
     Indication: NEUROPATHY
     Dosage: 50 MCG;Q3D;TDER
     Dates: start: 20050308
  2. METFORMIN [Concomitant]
  3. SPIRONOLACTONE/ALTIZIDE [Concomitant]

REACTIONS (3)
  - HEADACHE [None]
  - SEDATION [None]
  - SENSATION OF FOREIGN BODY [None]
